FAERS Safety Report 6450002-9 (Version None)
Quarter: 2009Q4

REPORT INFORMATION
  Report Type: 
  Country: None (occurrence: None)
  Receive Date: 20091123
  Receipt Date: 20091112
  Transmission Date: 20100525
  Serious: No
  Sender: FDA-Public Use
  Company Number: US-JNJFOC-20091008260

PATIENT
  Sex: Male
  Weight: 79.38 kg

DRUGS (4)
  1. DURAGESIC-100 [Suspect]
     Indication: PAIN
     Route: 062
     Dates: start: 20091016
  2. DURAGESIC-100 [Suspect]
     Dosage: 2 25 UG/HR PATCHES
     Route: 062
  3. DURAGESIC-100 [Suspect]
     Route: 062
  4. WATSON FENTANYL TRANSDERMAL SYSTEM [Suspect]
     Indication: PAIN
     Route: 062

REACTIONS (7)
  - COUGH [None]
  - DRUG EFFECT DECREASED [None]
  - DRUG INEFFECTIVE [None]
  - INAPPROPRIATE SCHEDULE OF DRUG ADMINISTRATION [None]
  - INSOMNIA [None]
  - NASOPHARYNGITIS [None]
  - WITHDRAWAL SYNDROME [None]
